FAERS Safety Report 15608840 (Version 4)
Quarter: 2019Q1

REPORT INFORMATION
  Report Type: Spontaneous
  Country: US (occurrence: US)
  Receive Date: 20181112
  Receipt Date: 20190123
  Transmission Date: 20190417
  Serious: No
  Sender: FDA-Public Use
  Company Number: US-SA-2018SA306886

PATIENT
  Age: 60 Year
  Sex: Male

DRUGS (1)
  1. TOUJEO [Suspect]
     Active Substance: INSULIN GLARGINE
     Indication: TYPE 2 DIABETES MELLITUS
     Dosage: 84 IU, QAM
     Route: 065

REACTIONS (3)
  - Injection site pain [Unknown]
  - Device issue [Unknown]
  - Injection site swelling [Unknown]
